FAERS Safety Report 10740751 (Version 1)
Quarter: 2015Q1

REPORT INFORMATION
  Report Type: Spontaneous
  Country: US (occurrence: None)
  Receive Date: 20150123
  Receipt Date: 20150123
  Transmission Date: 20150721
  Serious: Yes (Hospitalization)
  Sender: FDA-Public Use
  Company Number: None

PATIENT
  Age: 50 Year
  Sex: Male

DRUGS (2)
  1. SOVALDI [Suspect]
     Active Substance: SOFOSBUVIR
     Dosage: ONE  TABLET
     Route: 048
     Dates: start: 20141003, end: 20150114
  2. RIBASPHERE RIBAPAK [Concomitant]
     Active Substance: RIBAVIRIN

REACTIONS (13)
  - Lip swelling [None]
  - Cyanosis [None]
  - Restlessness [None]
  - Memory impairment [None]
  - Anxiety [None]
  - Pruritus [None]
  - Disorientation [None]
  - Mood swings [None]
  - Chromaturia [None]
  - Depression [None]
  - Insomnia [None]
  - Hyperhidrosis [None]
  - Dry mouth [None]

NARRATIVE: CASE EVENT DATE: 20150114
